FAERS Safety Report 15547083 (Version 1)
Quarter: 2018Q4

REPORT INFORMATION
  Report Type: Spontaneous
  Country: TH (occurrence: TH)
  Receive Date: 20181024
  Receipt Date: 20181024
  Transmission Date: 20190205
  Serious: Yes (Death, Life-Threatening, Other)
  Sender: FDA-Public Use
  Company Number: TH-BAUSCH-BL-2018-029227

PATIENT
  Age: 13 Year
  Sex: Female

DRUGS (3)
  1. DEXAMETHASONE. [Suspect]
     Active Substance: DEXAMETHASONE
     Indication: HAEMOPHAGOCYTIC LYMPHOHISTIOCYTOSIS
     Route: 065
  2. HUMAN NORMAL IMMUNOGLOBULIN (IV) [Suspect]
     Active Substance: HUMAN IMMUNOGLOBULIN G
     Indication: HAEMOPHAGOCYTIC LYMPHOHISTIOCYTOSIS
     Route: 042
  3. ETOPOSIDE. [Suspect]
     Active Substance: ETOPOSIDE
     Indication: HAEMOPHAGOCYTIC LYMPHOHISTIOCYTOSIS
     Route: 065

REACTIONS (2)
  - Drug ineffective [Fatal]
  - Multiple organ dysfunction syndrome [Fatal]
